FAERS Safety Report 6384653-7 (Version None)
Quarter: 2009Q4

REPORT INFORMATION
  Report Type: 
  Country: None (occurrence: None)
  Receive Date: 20091001
  Receipt Date: 20090922
  Transmission Date: 20100525
  Serious: Yes (Hospitalization)
  Sender: FDA-Public Use
  Company Number: PHHO2009IT09601

PATIENT
  Sex: Male
  Weight: 62 kg

DRUGS (7)
  1. RAD 666 RAD+TAB [Suspect]
     Indication: LIVER TRANSPLANT
     Dosage: 3 MG/DAY
     Route: 048
     Dates: start: 20090527, end: 20090609
  2. RAD 666 RAD+TAB [Suspect]
     Dosage: NO TREATMENT
     Dates: start: 20090610, end: 20090621
  3. RAD 666 RAD+TAB [Suspect]
     Dosage: 3 MG/DAY
     Route: 048
     Dates: start: 20090622, end: 20090801
  4. TACROLIMUS COMP-TAC+ [Suspect]
     Indication: LIVER TRANSPLANT
     Dosage: 12 MG/DAY
     Route: 048
     Dates: start: 20090429, end: 20090801
  5. TACROLIMUS COMP-TAC+ [Suspect]
     Dosage: 4 MG/DAY
     Route: 048
     Dates: start: 20090804
  6. DELTACORTENE [Concomitant]
     Indication: LIVER TRANSPLANT
     Dosage: 15 MG, QD
     Route: 048
     Dates: start: 20090429
  7. DELTACORTENE [Concomitant]
     Dosage: 25 MG/DAY
     Route: 048
     Dates: start: 20090429

REACTIONS (2)
  - DEEP VEIN THROMBOSIS [None]
  - PULMONARY EMBOLISM [None]
